FAERS Safety Report 5528489-5 (Version None)
Quarter: 2007Q4

REPORT INFORMATION
  Report Type: 
  Country: None (occurrence: None)
  Receive Date: 20071128
  Receipt Date: 20071120
  Transmission Date: 20080405
  Serious: Yes (Other)
  Sender: FDA-Public Use
  Company Number: JP-MERCK-0711USA04381

PATIENT
  Age: 41 Year
  Sex: Male

DRUGS (5)
  1. FAMOTIDINE [Suspect]
     Route: 048
  2. FLUVOXAMINE MALEATE [Concomitant]
     Route: 048
  3. MEILAX [Concomitant]
     Route: 048
  4. BUSCOPAN [Concomitant]
     Route: 048
  5. [THERAPY UNSPECIFIED] [Concomitant]
     Route: 048

REACTIONS (1)
  - PYELONEPHRITIS [None]
